FAERS Safety Report 5369884-7 (Version None)
Quarter: 2007Q2

REPORT INFORMATION
  Report Type: 
  Country: None (occurrence: None)
  Receive Date: 20070621
  Receipt Date: 20070611
  Transmission Date: 20071010
  Serious: Yes (Death, Life-Threatening, Other)
  Sender: FDA-Public Use
  Company Number: GXKR2007DE05073

PATIENT
  Age: 48 Year
  Sex: Male
  Weight: 81 kg

DRUGS (3)
  1. SIMVASTATIN [Suspect]
     Indication: LOW DENSITY LIPOPROTEIN INCREASED
     Dosage: 40 MG, ORAL
     Route: 048
     Dates: start: 20070101, end: 20070401
  2. ALLOPURINOL [Suspect]
     Indication: HYPERNATRAEMIA
     Dosage: 300 MG, ORAL
     Route: 048
     Dates: start: 20070101, end: 20070401
  3. NEXIUM [Suspect]
     Indication: GASTRITIS
     Dosage: 20 MG, ORAL
     Route: 048
     Dates: start: 20061201, end: 20070101

REACTIONS (8)
  - ACUTE HEPATIC FAILURE [None]
  - CRUSH SYNDROME [None]
  - DIALYSIS [None]
  - DRUG INTERACTION [None]
  - HYPOKINESIA [None]
  - RENAL FAILURE [None]
  - RESPIRATORY FAILURE [None]
  - RHABDOMYOLYSIS [None]
